FAERS Safety Report 9012459 (Version 2)
Quarter: 2013Q1

REPORT INFORMATION
  Report Type: Spontaneous
  Country: BE (occurrence: BE)
  Receive Date: 20130114
  Receipt Date: 20130211
  Transmission Date: 20140127
  Serious: Yes (Other)
  Sender: FDA-Public Use
  Company Number: BE-BAYER-2013-004402

PATIENT
  Age: 72 Year
  Sex: Female

DRUGS (3)
  1. PROFLOX [Suspect]
     Dosage: STOP DATE JAN-2013 DURATION 10 DAYS (SYSTEM DID NOT ALLOW TO ENTER IN STRUCTURED FIELD)
     Route: 048
     Dates: start: 201212
  2. ASAFLOW [Concomitant]
  3. VASEXTEN [Concomitant]

REACTIONS (2)
  - Leukocytosis [None]
  - Anaemia [None]
